FAERS Safety Report 18580424 (Version 9)
Quarter: 2022Q4

REPORT INFORMATION
  Report Type: Spontaneous
  Country: US (occurrence: US)
  Receive Date: 20201204
  Receipt Date: 20221103
  Transmission Date: 20230113
  Serious: No
  Sender: FDA-Public Use
  Company Number: US-PFIZER INC-2020424517

PATIENT
  Age: 41 Year
  Sex: Female
  Weight: 66.68 kg

DRUGS (3)
  1. XELJANZ XR [Suspect]
     Active Substance: TOFACITINIB CITRATE
     Indication: Rheumatoid arthritis
     Dosage: 11 MG
     Dates: start: 20200526
  2. XELJANZ XR [Suspect]
     Active Substance: TOFACITINIB CITRATE
     Dosage: 11 MG
     Dates: start: 20200601
  3. XELJANZ XR [Suspect]
     Active Substance: TOFACITINIB CITRATE
     Dosage: 11 MG
     Dates: start: 20200727

REACTIONS (7)
  - Abdominal pain upper [Unknown]
  - Dizziness [Unknown]
  - Weight decreased [Unknown]
  - Pain [Unknown]
  - Gait inability [Unknown]
  - Inflammation [Unknown]
  - Swelling [Unknown]
